FAERS Safety Report 7689502-2 (Version None)
Quarter: 2011Q3

REPORT INFORMATION
  Report Type: 
  Country: None (occurrence: None)
  Receive Date: 20110817
  Receipt Date: 20110720
  Transmission Date: 20111222
  Serious: No
  Sender: FDA-Public Use
  Company Number: US-TYCO HEALTHCARE/MALLINCKRODT-T201101450

PATIENT
  Sex: Male

DRUGS (2)
  1. FENTANYL [Concomitant]
     Dosage: 75 UG/HR, UNK
  2. FENTANYL-100 [Suspect]
     Indication: PAIN
     Dosage: 75 UG/HR, UNK
     Route: 062

REACTIONS (2)
  - APPLICATION SITE EROSION [None]
  - APPLICATION SITE DISCOMFORT [None]
